FAERS Safety Report 8572680-0 (Version None)
Quarter: 2012Q2

REPORT INFORMATION
  Report Type: 
  Country: None (occurrence: None)
  Receive Date: 20120423
  Receipt Date: 20090922
  Transmission Date: 20120825
  Serious: Yes (Other)
  Sender: FDA-Public Use
  Company Number: PHEH2009US10883

PATIENT
  Age: 10 Year
  Sex: Female
  Weight: 47.6 kg

DRUGS (4)
  1. EXJADE [Suspect]
     Indication: IRON OVERLOAD
     Dosage: 1000 MG DAILY, 20 MG/KG, ORAL
     Route: 048
     Dates: end: 20090815
  2. EXJADE [Suspect]
     Indication: SICKLE CELL ANAEMIA
     Dosage: 1000 MG DAILY, 20 MG/KG, ORAL
     Route: 048
     Dates: end: 20090815
  3. EXJADE [Suspect]
     Indication: IRON OVERLOAD
     Dosage: 1000 MG DAILY, 20 MG/KG, ORAL
     Route: 048
     Dates: start: 20090114, end: 20090718
  4. EXJADE [Suspect]
     Indication: SICKLE CELL ANAEMIA
     Dosage: 1000 MG DAILY, 20 MG/KG, ORAL
     Route: 048
     Dates: start: 20090114, end: 20090718

REACTIONS (4)
  - ASPARTATE AMINOTRANSFERASE INCREASED [None]
  - TRANSAMINASES INCREASED [None]
  - DRUG INEFFECTIVE [None]
  - ALANINE AMINOTRANSFERASE INCREASED [None]
